FAERS Safety Report 18690991 (Version 1)
Quarter: 2021Q1

REPORT INFORMATION
  Report Type: Spontaneous
  Country: US (occurrence: US)
  Receive Date: 20210101
  Receipt Date: 20210101
  Transmission Date: 20210419
  Serious: No
  Sender: FDA-Public Use
  Company Number: US-GLAXOSMITHKLINE-US2020255652

PATIENT
  Age: 70 Year
  Sex: Female

DRUGS (2)
  1. VOLTAREN ARTHRITIS PAIN [Suspect]
     Active Substance: DICLOFENAC SODIUM
     Dosage: UNK, BID (SOMETIMES I ONLY USED IT 3 TIMES A DAY AND NOW I AM USING ABOUT 2 TIMES A DAY)
     Dates: start: 20201128
  2. VOLTAREN ARTHRITIS PAIN [Suspect]
     Active Substance: DICLOFENAC SODIUM
     Indication: ARTHRITIS
     Dosage: UNK, TID (SOMETIMES I ONLY USED IT 3 TIMES A DAY AND NOW I AM USING ABOUT 2 TIMES A DAY)
     Dates: start: 20201128

REACTIONS (2)
  - Inappropriate schedule of product administration [Unknown]
  - Incorrect product administration duration [Unknown]
